APPROVED DRUG PRODUCT: IBUPROFEN
Active Ingredient: IBUPROFEN
Strength: 300MG
Dosage Form/Route: TABLET;ORAL
Application: A071266 | Product #001
Applicant: LEINER HEALTH PRODUCTS INC
Approved: Oct 15, 1986 | RLD: No | RS: No | Type: DISCN